FAERS Safety Report 6403871-2 (Version None)
Quarter: 2009Q4

REPORT INFORMATION
  Report Type: 
  Country: None (occurrence: None)
  Receive Date: 20091016
  Receipt Date: 20091006
  Transmission Date: 20100525
  Serious: Yes (Hospitalization)
  Sender: FDA-Public Use
  Company Number: IT-PFIZER INC-2006055454

PATIENT
  Age: 67 Year

DRUGS (8)
  1. SUNITINIB MALATE [Suspect]
     Indication: RENAL CANCER
     Dosage: 25 MG, 1X/DAY
     Route: 048
     Dates: start: 20060303, end: 20060418
  2. SELOKEN [Concomitant]
     Route: 048
     Dates: start: 20010601
  3. NORVASC [Concomitant]
     Route: 048
     Dates: start: 19820101
  4. ASPIRIN [Concomitant]
     Route: 048
     Dates: start: 20010601
  5. SINVACOR [Concomitant]
     Route: 048
     Dates: start: 20010601
  6. LASIX [Concomitant]
     Route: 048
     Dates: start: 20010601
  7. SOLDESAM [Concomitant]
     Route: 048
     Dates: start: 20060322
  8. LANSOX [Concomitant]
     Route: 048
     Dates: start: 20060308

REACTIONS (1)
  - PARALYSIS [None]
